FAERS Safety Report 25230143 (Version 1)
Quarter: 2025Q2

REPORT INFORMATION
  Report Type: Spontaneous
  Country: US (occurrence: US)
  Receive Date: 20250423
  Receipt Date: 20250423
  Transmission Date: 20250716
  Serious: Yes (Hospitalization)
  Sender: PFIZER
  Company Number: US-PFIZER INC-PV202500047534

PATIENT
  Age: 56 Year
  Sex: Female

DRUGS (2)
  1. IBRANCE [Suspect]
     Active Substance: PALBOCICLIB
     Dates: end: 20250306
  2. IBRANCE [Suspect]
     Active Substance: PALBOCICLIB
     Dates: start: 20250411

REACTIONS (4)
  - Blood glucose increased [Recovering/Resolving]
  - Rash [Unknown]
  - Hypersomnia [Unknown]
  - Product dose omission issue [Unknown]

NARRATIVE: CASE EVENT DATE: 20250417
